FAERS Safety Report 12688760 (Version 1)
Quarter: 2016Q3

REPORT INFORMATION
  Report Type: Spontaneous
  Country: US (occurrence: None)
  Receive Date: 20160825
  Receipt Date: 20160825
  Transmission Date: 20161109
  Serious: No
  Sender: FDA-Public Use
  Company Number: None

PATIENT
  Sex: Male

DRUGS (2)
  1. METOPROLOL TARTARE [Suspect]
     Active Substance: METOPROLOL TARTRATE
  2. CARDIZEM [Suspect]
     Active Substance: DILTIAZEM HYDROCHLORIDE

REACTIONS (4)
  - Heart rate decreased [None]
  - Incorrect dose administered [None]
  - Heart rate increased [None]
  - Therapeutic drug monitoring analysis not performed [None]
